FAERS Safety Report 9016976 (Version 3)
Quarter: 2013Q4

REPORT INFORMATION
  Report Type: Spontaneous
  Country: US (occurrence: US)
  Receive Date: 20130117
  Receipt Date: 20131111
  Transmission Date: 20140711
  Serious: Yes (Death, Hospitalization, Other)
  Sender: FDA-Public Use
  Company Number: US-009507513-1301USA006335

PATIENT
  Sex: Female
  Weight: 68.27 kg

DRUGS (5)
  1. FOSAMAX [Suspect]
     Indication: OSTEOPENIA
     Dosage: 70 MG, UNK
     Route: 048
     Dates: start: 200508, end: 200805
  2. ALENDRONATE SODIUM [Suspect]
     Indication: OSTEOPENIA
     Dosage: 70 MG, UNK
     Route: 048
     Dates: start: 200805, end: 200904
  3. CALCIUM (UNSPECIFIED) [Concomitant]
     Dosage: 600 MG, UNK
     Dates: start: 2001, end: 20130705
  4. VITAMIN D (UNSPECIFIED) [Concomitant]
     Dosage: 2000 UNITS, UNK
     Dates: start: 2001, end: 20130705
  5. PRILOSEC [Concomitant]
     Dosage: UNK
     Dates: start: 2005, end: 2006

REACTIONS (22)
  - Femur fracture [Unknown]
  - Intramedullary rod insertion [Unknown]
  - Breast cancer [Unknown]
  - Knee arthroplasty [Unknown]
  - Death [Fatal]
  - Cough [Unknown]
  - Oestrogen deficiency [Unknown]
  - Intervertebral disc degeneration [Unknown]
  - Synovitis [Unknown]
  - Spinal osteoarthritis [Unknown]
  - Hepatic cyst [Unknown]
  - Hiatus hernia [Unknown]
  - Pancreatic mass [Unknown]
  - Dilatation intrahepatic duct acquired [Unknown]
  - Diverticulum intestinal [Unknown]
  - Hepatic steatosis [Unknown]
  - Osteoporosis [Unknown]
  - Body height decreased [Unknown]
  - Pain in extremity [Unknown]
  - Gastrooesophageal reflux disease [Unknown]
  - Nausea [Unknown]
  - Vomiting [Unknown]
